FAERS Safety Report 10264343 (Version 1)
Quarter: 2014Q2

REPORT INFORMATION
  Report Type: Spontaneous
  Country: US (occurrence: None)
  Receive Date: 20140624
  Receipt Date: 20140624
  Transmission Date: 20141212
  Serious: Yes (Other)
  Sender: FDA-Public Use
  Company Number: None

PATIENT
  Sex: 0

DRUGS (17)
  1. LEVOFLOXACIN 500 MG TABLETS [Suspect]
     Dosage: 500 MG 1 TIME DAILY EVENING ORAL
     Route: 048
     Dates: start: 20140523, end: 20140527
  2. JANUVIA [Concomitant]
  3. GLIMERPRIDE [Concomitant]
  4. SYNTHROID [Concomitant]
  5. AVAPRO [Concomitant]
  6. BISOPRLOL [Concomitant]
  7. HYDROCHLOROTHIAZIDE [Concomitant]
  8. ALLOPURINT [Concomitant]
  9. COLCHICINE [Concomitant]
  10. HYDROQUINE [Concomitant]
  11. GABAPENTIN [Concomitant]
  12. VIT E [Concomitant]
  13. MILK THISTLE [Concomitant]
  14. SOYA LECHIN [Concomitant]
  15. FISH OIL [Concomitant]
  16. VITA D [Concomitant]
  17. VIT C [Concomitant]

REACTIONS (5)
  - Muscle spasms [None]
  - Abasia [None]
  - Pain in extremity [None]
  - Tendonitis [None]
  - Impaired driving ability [None]
